FAERS Safety Report 12402822 (Version 2)
Quarter: 2016Q2

REPORT INFORMATION
  Report Type: Spontaneous
  Country: US (occurrence: US)
  Receive Date: 20160525
  Receipt Date: 20160527
  Transmission Date: 20160815
  Serious: No
  Sender: FDA-Public Use
  Company Number: US-SA-2016SA077380

PATIENT
  Age: 73 Year
  Sex: Female

DRUGS (4)
  1. LANTUS SOLOSTAR [Suspect]
     Active Substance: INSULIN GLARGINE
     Indication: TYPE 2 DIABETES MELLITUS
     Dosage: DOSE:47 UNIT(S)
     Route: 065
     Dates: start: 2013, end: 20160411
  2. LANTUS SOLOSTAR [Suspect]
     Active Substance: INSULIN GLARGINE
     Indication: TYPE 2 DIABETES MELLITUS
     Dosage: DOSE:47 UNIT(S)
     Route: 065
  3. SOLOSTAR [Concomitant]
     Active Substance: DEVICE
     Dates: start: 2013, end: 20160411
  4. SOLOSTAR [Concomitant]
     Active Substance: DEVICE

REACTIONS (7)
  - Drug dose omission [Unknown]
  - Malaise [Unknown]
  - Feeling abnormal [Unknown]
  - Headache [Unknown]
  - Incorrect product storage [Unknown]
  - Abdominal pain upper [Unknown]
  - Blood glucose increased [Unknown]

NARRATIVE: CASE EVENT DATE: 2016
